FAERS Safety Report 8171165-3 (Version None)
Quarter: 2012Q1

REPORT INFORMATION
  Report Type: 
  Country: None (occurrence: None)
  Receive Date: 20120228
  Receipt Date: 20111118
  Transmission Date: 20120608
  Serious: No
  Sender: FDA-Public Use
  Company Number: US-BRISTOL-MYERS SQUIBB COMPANY-16238099

PATIENT
  Age: 48 Year
  Sex: Female

DRUGS (2)
  1. ONGLYZA [Suspect]
     Indication: DIABETES MELLITUS
  2. GLIMEPIRIDE [Concomitant]

REACTIONS (2)
  - MOUTH ULCERATION [None]
  - TONGUE DISORDER [None]
